FAERS Safety Report 25134042 (Version 3)
Quarter: 2025Q3

REPORT INFORMATION
  Report Type: Spontaneous
  Country: US (occurrence: US)
  Receive Date: 20250328
  Receipt Date: 20250814
  Transmission Date: 20251021
  Serious: No
  Sender: SANOFI AVENTIS
  Company Number: US-SA-2025SA089326

PATIENT
  Age: 54 Year
  Sex: Female

DRUGS (3)
  1. DUPIXENT [Suspect]
     Active Substance: DUPILUMAB
     Indication: Asthma
     Dosage: 300 MG, QOW
     Route: 058
     Dates: start: 202404
  2. ALBUTEROL [Concomitant]
     Active Substance: ALBUTEROL
  3. WELLBUTRIN [Concomitant]
     Active Substance: BUPROPION HYDROCHLORIDE

REACTIONS (4)
  - Asthma [Recovering/Resolving]
  - Dyspnoea [Unknown]
  - Dyspnoea exertional [Not Recovered/Not Resolved]
  - Injection site reaction [Unknown]

NARRATIVE: CASE EVENT DATE: 20250201
